FAERS Safety Report 9123930 (Version 3)
Quarter: 2013Q2

REPORT INFORMATION
  Report Type: Report from Study
  Country: US (occurrence: US)
  Receive Date: 20130227
  Receipt Date: 20130620
  Transmission Date: 20140414
  Serious: Yes (Other)
  Sender: FDA-Public Use
  Company Number: US-ROCHE-1193774

PATIENT
  Age: 69 Year
  Sex: Male
  Weight: 85.35 kg

DRUGS (10)
  1. AVASTIN [Suspect]
     Indication: COLORECTAL CANCER METASTATIC
     Route: 042
     Dates: start: 20110915, end: 201203
  2. AVASTIN [Suspect]
     Route: 042
     Dates: start: 20120402, end: 201208
  3. AVASTIN [Suspect]
     Route: 042
     Dates: start: 201208
  4. AVASTIN [Suspect]
     Route: 042
     Dates: start: 20120912
  5. IRINOTECAN [Concomitant]
     Indication: COLORECTAL CANCER METASTATIC
     Route: 042
  6. OXALIPLATIN [Concomitant]
     Indication: COLORECTAL CANCER METASTATIC
     Route: 042
     Dates: start: 20120402
  7. BENADRYL [Concomitant]
     Indication: RASH
  8. 5-FLUOROURACIL [Concomitant]
  9. VITAMIN B12 [Concomitant]
  10. FOLIC ACID [Concomitant]

REACTIONS (26)
  - Bone marrow disorder [Not Recovered/Not Resolved]
  - Diarrhoea [Not Recovered/Not Resolved]
  - Rash [Not Recovered/Not Resolved]
  - Weight decreased [Recovering/Resolving]
  - Pruritus [Not Recovered/Not Resolved]
  - Abdominal discomfort [Recovering/Resolving]
  - Ill-defined disorder [Not Recovered/Not Resolved]
  - Pyrexia [Recovered/Resolved]
  - Chills [Recovered/Resolved]
  - Nausea [Recovered/Resolved]
  - Fatigue [Recovered/Resolved]
  - Asthenia [Recovered/Resolved]
  - Blood test abnormal [Not Recovered/Not Resolved]
  - Dry skin [Not Recovered/Not Resolved]
  - Skin irritation [Not Recovered/Not Resolved]
  - Red blood cell count decreased [Unknown]
  - Haemoglobin decreased [Unknown]
  - Haematocrit decreased [Unknown]
  - Rash [Recovering/Resolving]
  - Pruritus [Recovering/Resolving]
  - Diarrhoea [Recovered/Resolved]
  - Nausea [Recovering/Resolving]
  - Fatigue [Recovering/Resolving]
  - Lethargy [Recovering/Resolving]
  - Dysgeusia [Recovered/Resolved]
  - Drug ineffective [Unknown]
